FAERS Safety Report 16018951 (Version 1)
Quarter: 2019Q1

REPORT INFORMATION
  Report Type: Spontaneous
  Country: US (occurrence: US)
  Receive Date: 20190228
  Receipt Date: 20190228
  Transmission Date: 20190418
  Serious: Yes (Hospitalization, Other)
  Sender: FDA-Public Use
  Company Number: US-VALIDUS PHARMACEUTICALS LLC-US-2018VAL000926

PATIENT
  Age: 75 Year
  Sex: Female
  Weight: 79.82 kg

DRUGS (22)
  1. ACYCLOVIR                          /00587301/ [Concomitant]
     Active Substance: ACYCLOVIR
     Indication: ANTIVIRAL PROPHYLAXIS
     Dosage: UNK
     Dates: start: 20160304
  2. MAGNESIUM OXIDE. [Concomitant]
     Active Substance: MAGNESIUM OXIDE
     Indication: VITAMIN SUPPLEMENTATION
     Dosage: UNK
     Dates: start: 20160304
  3. SENOKOT-S [Concomitant]
     Active Substance: DOCUSATE SODIUM\SENNOSIDES
     Indication: FAECES HARD
     Dosage: UNK
     Dates: start: 20160304
  4. HYZAAR [Suspect]
     Active Substance: HYDROCHLOROTHIAZIDE\LOSARTAN POTASSIUM
     Indication: BLOOD PRESSURE INCREASED
     Dosage: 1 DF, QD
     Route: 048
     Dates: start: 20160304, end: 20160319
  5. TOPROL XL [Suspect]
     Active Substance: METOPROLOL SUCCINATE
     Dosage: UNK
     Dates: start: 20160322
  6. ALLOPURINOL. [Concomitant]
     Active Substance: ALLOPURINOL
     Indication: TUMOUR LYSIS SYNDROME
     Dosage: UNK
     Dates: start: 20160304
  7. DIGOXIN. [Concomitant]
     Active Substance: DIGOXIN
     Indication: ARRHYTHMIA
     Dosage: UNK
     Dates: start: 20160304, end: 20160319
  8. ULTRAM [Concomitant]
     Active Substance: TRAMADOL HYDROCHLORIDE
     Indication: PAIN
     Dosage: UNK
     Dates: start: 20160304
  9. FLUCONAZOLE. [Concomitant]
     Active Substance: FLUCONAZOLE
     Indication: ANTIFUNGAL PROPHYLAXIS
     Dosage: UNK
     Dates: start: 20160304
  10. LASIX [Suspect]
     Active Substance: FUROSEMIDE
     Dosage: UNK
     Dates: start: 20160322
  11. GEMTUZUMAB OZOGAMICIN [Suspect]
     Active Substance: GEMTUZUMAB OZOGAMICIN
     Indication: ACUTE MYELOID LEUKAEMIA
     Dosage: UNK
     Route: 042
     Dates: start: 20160304
  12. IBUPROFEN. [Suspect]
     Active Substance: IBUPROFEN
     Indication: PAIN
     Dosage: 1 DF, BID, AS NEEDED
     Route: 048
     Dates: start: 20160308, end: 20160319
  13. BIOTENE                            /03475601/ [Concomitant]
     Active Substance: SODIUM FLUORIDE\SODIUM MONOFLUOROPHOSPHATE
     Indication: DENTAL DISORDER PROPHYLAXIS
     Dosage: UNK
     Dates: start: 20160304
  14. HYDROXYUREA. [Concomitant]
     Active Substance: HYDROXYUREA
     Indication: NEOPLASM
     Dosage: UNK
     Dates: start: 20160311
  15. HYZAAR [Suspect]
     Active Substance: HYDROCHLOROTHIAZIDE\LOSARTAN POTASSIUM
     Dosage: UNK
     Dates: start: 20160322
  16. LEVOTHYROXINE. [Concomitant]
     Active Substance: LEVOTHYROXINE
     Indication: THYROID DISORDER
     Dosage: UNK
     Dates: start: 20160304
  17. PROTONIX                           /00661201/ [Concomitant]
     Active Substance: OMEPRAZOLE
     Indication: ANTACID THERAPY
     Dosage: UNK
     Dates: start: 20160304
  18. LASIX [Suspect]
     Active Substance: FUROSEMIDE
     Indication: DIURETIC THERAPY
     Dosage: 1 DF, BID
     Route: 048
     Dates: start: 20160304, end: 20160319
  19. TOPROL XL [Suspect]
     Active Substance: METOPROLOL SUCCINATE
     Indication: BLOOD PRESSURE INCREASED
     Dosage: 1 DF, QD
     Route: 048
     Dates: start: 20160304, end: 20160319
  20. CIPROFLOXACIN. [Concomitant]
     Active Substance: CIPROFLOXACIN
     Indication: ANTIBIOTIC THERAPY
     Dosage: UNK
     Dates: start: 20160304
  21. DIGOXIN. [Concomitant]
     Active Substance: DIGOXIN
     Indication: BLOOD PRESSURE MANAGEMENT
  22. LIPITOR [Concomitant]
     Active Substance: ATORVASTATIN CALCIUM
     Indication: HYPERLIPIDAEMIA
     Dosage: UNK
     Dates: start: 20160304

REACTIONS (2)
  - Acute kidney injury [Recovering/Resolving]
  - Dehydration [Recovered/Resolved]

NARRATIVE: CASE EVENT DATE: 20160319
